FAERS Safety Report 15965457 (Version 3)
Quarter: 2019Q3

REPORT INFORMATION
  Report Type: Report from Study
  Country: None (occurrence: ES)
  Receive Date: 20190215
  Receipt Date: 20190701
  Transmission Date: 20191004
  Serious: Yes (Disabling)
  Sender: FDA-Public Use
  Company Number: ES-ABBVIE-19P-144-2656882-00

PATIENT
  Age: 63 Year
  Sex: Male

DRUGS (10)
  1. DUODOPA [Suspect]
     Active Substance: CARBIDOPA\LEVODOPA
     Dosage: MD:10ML CD: 3.2ML/H ED: 3ML
     Route: 050
     Dates: start: 20181025
  2. DUODOPA [Suspect]
     Active Substance: CARBIDOPA\LEVODOPA
     Dosage: MD:10ML CD: 3ML/H ED: 3ML
     Route: 050
     Dates: start: 20180426, end: 20181025
  3. AUGMENTINE [Concomitant]
     Active Substance: AMOXICILLIN\CLAVULANATE POTASSIUM
     Indication: STOMA SITE INFECTION
     Dosage: 875/125 MG
     Route: 048
     Dates: start: 20181026, end: 20181105
  4. SERTRALINE [Concomitant]
     Active Substance: SERTRALINE HYDROCHLORIDE
     Indication: DEPRESSION
     Route: 048
     Dates: start: 2015, end: 20180126
  5. RIVOTRIL [Concomitant]
     Active Substance: CLONAZEPAM
     Indication: RAPID EYE MOVEMENT SLEEP BEHAVIOUR DISORDER
     Route: 048
     Dates: start: 2009
  6. DUODOPA [Suspect]
     Active Substance: CARBIDOPA\LEVODOPA
     Indication: PARKINSON^S DISEASE
     Dosage: TITRATION: DOSNG AT END OF TITRATION: MD:10ML CD: 2.5ML/H ED: 3ML, 0X/D, 16 H
     Route: 050
     Dates: start: 20171023, end: 20171026
  7. DUODOPA [Suspect]
     Active Substance: CARBIDOPA\LEVODOPA
     Route: 050
     Dates: start: 20171026, end: 20180426
  8. QUETIAPINE. [Concomitant]
     Active Substance: QUETIAPINE
     Indication: IMPULSE-CONTROL DISORDER
     Route: 048
     Dates: start: 2013
  9. SINEMET [Concomitant]
     Active Substance: CARBIDOPA\LEVODOPA
     Indication: PARKINSON^S DISEASE
     Dosage: 100/50 MG
     Route: 048
     Dates: start: 201702
  10. QUETIAPINE. [Concomitant]
     Active Substance: QUETIAPINE
     Indication: HYPERSEXUALITY

REACTIONS (1)
  - Dementia [Not Recovered/Not Resolved]

NARRATIVE: CASE EVENT DATE: 20190201
